FAERS Safety Report 16499617 (Version 1)
Quarter: 2019Q3

REPORT INFORMATION
  Report Type: Report from Study
  Country: GB (occurrence: GB)
  Receive Date: 20190701
  Receipt Date: 20190701
  Transmission Date: 20191004
  Serious: Yes (Other)
  Sender: FDA-Public Use
  Company Number: GB-GLAXOSMITHKLINE-GB2019GSK115242

PATIENT
  Age: 37 Year
  Sex: Male

DRUGS (1)
  1. ABACAVIR SULFATE + LAMIVUDINE [Suspect]
     Active Substance: ABACAVIR SULFATE\LAMIVUDINE
     Indication: HIV INFECTION
     Dosage: UNK

REACTIONS (3)
  - Abdominal discomfort [Unknown]
  - Abdominal pain [Unknown]
  - Haematochezia [Unknown]
